FAERS Safety Report 4888923-0 (Version None)
Quarter: 2005Q4

REPORT INFORMATION
  Report Type: 
  Country: None (occurrence: None)
  Receive Date: 20051215
  Receipt Date: 20050706
  Transmission Date: 20060501
  Serious: Yes (Hospitalization)
  Sender: FDA-Public Use
  Company Number: 2005097846

PATIENT
  Age: 62 Year
  Sex: Female
  Weight: 90.7194 kg

DRUGS (13)
  1. BEXTRA [Suspect]
     Indication: OSTEOARTHRITIS
     Dosage: 20 MG (20 MG,1 IN 1 D),ORAL
     Route: 048
     Dates: start: 20030101, end: 20050401
  2. RELAFEN [Suspect]
     Indication: ILL-DEFINED DISORDER
     Dates: start: 20050601, end: 20050705
  3. ATENOLOL [Concomitant]
  4. LEVOTHYROXINE SODIUM [Concomitant]
  5. PREMARIN [Concomitant]
  6. LIPITOR [Concomitant]
  7. AMITRIPTYLINE HCL [Concomitant]
  8. ACYCLOVIR [Concomitant]
  9. QVAR (BECLOMETASONE DIPROPIONATE) [Concomitant]
  10. ALBUTEROL [Concomitant]
  11. RHINOCORT AQUA (BUDESONIDE) [Concomitant]
  12. ASPIRIN [Concomitant]
  13. MULTIVITAMIN [Concomitant]

REACTIONS (6)
  - ARTHRALGIA [None]
  - DIARRHOEA [None]
  - FATIGUE [None]
  - MALAISE [None]
  - PAIN [None]
  - VIRAL INFECTION [None]
